FAERS Safety Report 10762926 (Version 4)
Quarter: 2016Q1

REPORT INFORMATION
  Report Type: Spontaneous
  Country: US (occurrence: US)
  Receive Date: 20150204
  Receipt Date: 20160314
  Transmission Date: 20160525
  Serious: Yes (Hospitalization, Other)
  Sender: FDA-Public Use
  Company Number: US-BAYER-2015-016811

PATIENT
  Age: 37 Year
  Sex: Female

DRUGS (11)
  1. ALEVE [Concomitant]
     Active Substance: NAPROXEN SODIUM
  2. ZOFRAN [Concomitant]
     Active Substance: ONDANSETRON HYDROCHLORIDE
     Indication: NAUSEA
     Dosage: 4 MG, PRN
     Route: 042
  3. MAGNESIUM HYDROXIDE. [Concomitant]
     Active Substance: MAGNESIUM HYDROXIDE
     Indication: CONSTIPATION
  4. MIRENA [Suspect]
     Active Substance: LEVONORGESTREL
     Indication: CONTRACEPTION
     Dosage: 20 MCG/24HR, CONT
     Route: 015
     Dates: start: 20040916, end: 20090920
  5. BENAZEPRIL HYDROCHLORIDE. [Concomitant]
     Active Substance: BENAZEPRIL HYDROCHLORIDE
     Dosage: 20 MG, QD
     Dates: start: 20090914
  6. CHONDROITIN SULFATE W/GLUCOSAMINE [Concomitant]
  7. LOTENSIN [Concomitant]
     Active Substance: BENAZEPRIL HYDROCHLORIDE
  8. AMBIEN [Concomitant]
     Active Substance: ZOLPIDEM TARTRATE
     Dosage: 100 MG, PRN
     Route: 048
  9. PERCOCET [Concomitant]
     Active Substance: ACETAMINOPHEN\OXYCODONE HYDROCHLORIDE
     Indication: PAIN
     Dosage: 1-2 PER ORAL, PRN
     Route: 048
  10. COLACE [Concomitant]
     Active Substance: DOCUSATE SODIUM
     Dosage: 100 MG, BID
     Route: 048
  11. HYDROMORPHONE [Concomitant]
     Active Substance: HYDROMORPHONE
     Indication: NAUSEA
     Dosage: 0.25 MG, PRN

REACTIONS (16)
  - Depression [None]
  - Anxiety [None]
  - Uterine perforation [None]
  - Internal injury [None]
  - Device difficult to use [None]
  - Complication of device removal [None]
  - Fear [None]
  - Medical device discomfort [None]
  - Pelvic pain [None]
  - Emotional distress [None]
  - Pelvic inflammatory disease [None]
  - Injury [None]
  - Genital haemorrhage [None]
  - Device breakage [None]
  - Depressed mood [None]
  - Abdominal pain [None]

NARRATIVE: CASE EVENT DATE: 200909
